FAERS Safety Report 14874052 (Version 1)
Quarter: 2018Q2

REPORT INFORMATION
  Report Type: Spontaneous
  Country: US (occurrence: US)
  Receive Date: 20180424
  Receipt Date: 20180424
  Transmission Date: 20180711
  Serious: Yes (Other)
  Sender: FDA-Public Use
  Company Number: None

PATIENT
  Age: 71 Year
  Sex: Male

DRUGS (1)
  1. SUTENT [Suspect]
     Active Substance: SUNITINIB MALATE
     Indication: COMA
     Dosage: ONCE DAILY FOR 2  ^LLEEKS ON 1WEEK OFF    ?
     Route: 048
     Dates: start: 20170725

REACTIONS (2)
  - Epistaxis [None]
  - Myocardial infarction [None]

NARRATIVE: CASE EVENT DATE: 20180419
